FAERS Safety Report 6436642-1 (Version None)
Quarter: 2009Q4

REPORT INFORMATION
  Report Type: 
  Country: None (occurrence: None)
  Receive Date: 20091111
  Receipt Date: 20091106
  Transmission Date: 20100525
  Serious: Yes (Other)
  Sender: FDA-Public Use
  Company Number: AU-WYE-G04797209

PATIENT
  Sex: Female
  Weight: 82.85 kg

DRUGS (5)
  1. EFFEXOR XR [Suspect]
     Indication: MAJOR DEPRESSION
     Dosage: UP TO 300MG
     Route: 048
     Dates: start: 20090701, end: 20090824
  2. EFFEXOR XR [Suspect]
     Indication: ANXIETY
  3. QUETIAPINE [Concomitant]
     Indication: ANXIETY
     Dosage: 400MG DAILY
     Route: 048
     Dates: start: 20090701
  4. QUETIAPINE [Concomitant]
     Indication: DELIRIUM
  5. QUETIAPINE [Concomitant]
     Indication: PSYCHOTIC DISORDER

REACTIONS (8)
  - AFFECTIVE DISORDER [None]
  - ANXIETY [None]
  - CEREBELLAR ATROPHY [None]
  - CONDITION AGGRAVATED [None]
  - CONVULSION [None]
  - OPSOCLONUS MYOCLONUS [None]
  - SOMATOFORM DISORDER [None]
  - THYROID FUNCTION TEST ABNORMAL [None]
